FAERS Safety Report 5147636-0 (Version None)
Quarter: 2006Q4

REPORT INFORMATION
  Report Type: 
  Country: None (occurrence: None)
  Receive Date: 20061108
  Receipt Date: 20061108
  Transmission Date: 20070319
  Serious: No
  Sender: FDA-Public Use
  Company Number: None

PATIENT
  Age: 13 Year
  Sex: Female

DRUGS (1)
  1. DUAC [Suspect]
     Indication: ACNE
     Dosage: TOPICAL GEL TO FACE + BACK @ HS TOPICAL
     Route: 061
     Dates: start: 20060721, end: 20060824

REACTIONS (1)
  - DIARRHOEA [None]
